FAERS Safety Report 16857413 (Version 1)
Quarter: 2019Q3

REPORT INFORMATION
  Report Type: Spontaneous
  Country: IT (occurrence: IT)
  Receive Date: 20190926
  Receipt Date: 20190926
  Transmission Date: 20191005
  Serious: Yes (Other)
  Sender: FDA-Public Use
  Company Number: IT-MYLANLABS-2019M1089019

PATIENT
  Age: 73 Year
  Sex: Male

DRUGS (2)
  1. OXALIPLATIN. [Suspect]
     Active Substance: OXALIPLATIN
     Indication: COLON CANCER
     Dosage: 190 MILLIGRAM, CYCLE
     Route: 042
     Dates: start: 20190111, end: 20190404
  2. AVASTIN [Suspect]
     Active Substance: BEVACIZUMAB
     Indication: COLON CANCER
     Dosage: 250 MILLIGRAM, CYCLE
     Route: 042
     Dates: start: 20190111, end: 20190404

REACTIONS (9)
  - Proteinuria [Recovered/Resolved]
  - Asthenia [Recovered/Resolved]
  - Hypercreatinaemia [Recovered/Resolved]
  - Gait disturbance [Recovered/Resolved]
  - Decreased appetite [Recovered/Resolved]
  - Neutrophilia [Recovered/Resolved]
  - Dyspnoea [Recovered/Resolved]
  - Weight decreased [Recovered/Resolved]
  - Leukocytosis [Recovered/Resolved]

NARRATIVE: CASE EVENT DATE: 20190208
